FAERS Safety Report 9702282 (Version 1)
Quarter: 2013Q4

REPORT INFORMATION
  Report Type: Spontaneous
  Country: US (occurrence: None)
  Receive Date: 20131119
  Receipt Date: 20131119
  Transmission Date: 20140711
  Serious: Yes (Hospitalization)
  Sender: FDA-Public Use
  Company Number: DSU-2013-05094

PATIENT
  Age: 65 Year
  Sex: Female
  Weight: 72.58 kg

DRUGS (6)
  1. AZOR [Suspect]
     Indication: HYPERTENSION
     Dosage: 10/40MG (QD) , PER ORAL
     Route: 048
     Dates: start: 2012, end: 20131016
  2. AMLODIPINE (AMLODIPINE) (5 MILLIGRAM) (AMLODIPINE) [Concomitant]
  3. PEPCID (40 MICROGRAM) [Concomitant]
  4. SIMVASTATIN (SIMVASTATIN) (10 MILLIGRAM) (SIMVASTATIN)? [Concomitant]
  5. LEVOTHYROXINE (LEVOTHYROXINE) (150 MICROGRAM) (LEVOTHYROXINE)? [Concomitant]
  6. HYOSCYAMINE (HYOSCYAMINE) (0.375 MILLIGRAM) (HYOSCYAMINE) [Concomitant]

REACTIONS (1)
  - Coeliac disease [None]
